FAERS Safety Report 8803655 (Version 4)
Quarter: 2013Q1

REPORT INFORMATION
  Report Type: Spontaneous
  Country: GB (occurrence: GB)
  Receive Date: 20120924
  Receipt Date: 20130125
  Transmission Date: 20140127
  Serious: Yes (Disabling, Other)
  Sender: FDA-Public Use
  Company Number: GB-ACCORD-014686

PATIENT
  Age: 64 Year
  Sex: Female
  Weight: 48.1 kg

DRUGS (9)
  1. SIMVASTATIN [Suspect]
     Indication: HYPERLIPIDAEMIA
     Route: 048
     Dates: start: 20100128
  2. PRAVASTATIN SODIUM [Suspect]
     Indication: HYPERLIPIDAEMIA
     Route: 048
     Dates: start: 20100205
  3. AMLODIPINE [Concomitant]
     Indication: BLOOD PRESSURE INCREASED
     Route: 048
     Dates: start: 20100326, end: 20100401
  4. PROTHIADEN [Concomitant]
     Indication: DEPRESSION
     Route: 048
     Dates: start: 20040727
  5. SENNA [Concomitant]
     Indication: CONSTIPATION
     Dosage: ONCE A NIGHT
     Route: 048
     Dates: start: 20100205
  6. RANITIDINE [Concomitant]
  7. BENDROFLUAZIDE [Concomitant]
     Route: 048
     Dates: start: 20100401, end: 20100429
  8. PARACETAMOL [Concomitant]
     Indication: PAIN
     Dosage: AS NEEDED
     Route: 048
     Dates: start: 20080129
  9. ATORVASTATIN [Suspect]
     Indication: HYPERLIPIDAEMIA
     Route: 048
     Dates: start: 20100609

REACTIONS (12)
  - Vision blurred [Unknown]
  - Diplopia [Unknown]
  - Pruritus [Not Recovered/Not Resolved]
  - Muscle spasms [Not Recovered/Not Resolved]
  - Weight decreased [Not Recovered/Not Resolved]
  - Local swelling [Unknown]
  - Paraesthesia [Unknown]
  - Skin depigmentation [Unknown]
  - Fatigue [Not Recovered/Not Resolved]
  - Ear discomfort [Unknown]
  - Hepatomegaly [Unknown]
  - Depression [Unknown]
